FAERS Safety Report 24008800 (Version 1)
Quarter: 2024Q2

REPORT INFORMATION
  Report Type: Spontaneous
  Country: US (occurrence: US)
  Receive Date: 20240625
  Receipt Date: 20240625
  Transmission Date: 20240715
  Serious: No
  Sender: FDA-Public Use
  Company Number: US-BANNER LIFE SCIENCES, LLC-2023BAN000134

PATIENT

DRUGS (1)
  1. BAFIERTAM [Suspect]
     Active Substance: MONOMETHYL FUMARATE
     Indication: Multiple sclerosis
     Dosage: 190 MILLIGRAM, BID
     Route: 048
     Dates: start: 202302

REACTIONS (11)
  - Hyperhidrosis [Unknown]
  - Depression [Unknown]
  - Multiple sclerosis relapse [Unknown]
  - Back pain [Unknown]
  - Ophthalmoplegia [Unknown]
  - Muscular weakness [Unknown]
  - Eye allergy [Unknown]
  - Allergic respiratory symptom [Unknown]
  - Hypoaesthesia [Unknown]
  - Feeling hot [Unknown]
  - Fatigue [Unknown]

NARRATIVE: CASE EVENT DATE: 20230101
